FAERS Safety Report 8922893 (Version 1)
Quarter: 2012Q4

REPORT INFORMATION
  Report Type: 
  Country: CN (occurrence: CN)
  Receive Date: 20121123
  Receipt Date: 20121123
  Transmission Date: 20130627
  Serious: Yes (Hospitalization)
  Sender: FDA-Public Use
  Company Number: CN-JNJFOC-20121109187

PATIENT
  Age: 12 Year
  Sex: Female
  Weight: 40 kg

DRUGS (2)
  1. MOTRIN [Suspect]
     Route: 048
  2. MOTRIN [Suspect]
     Indication: PYREXIA
     Dosage: 10 ml
     Route: 048
     Dates: start: 20121114, end: 20121114

REACTIONS (3)
  - Eyelid oedema [Recovered/Resolved]
  - Hypersensitivity [Recovered/Resolved]
  - Drug hypersensitivity [None]
